FAERS Safety Report 8013300-3 (Version None)
Quarter: 2011Q4

REPORT INFORMATION
  Report Type: 
  Country: None (occurrence: None)
  Receive Date: 20111229
  Receipt Date: 20111216
  Transmission Date: 20120403
  Serious: Yes (Other)
  Sender: FDA-Public Use
  Company Number: PHHY2011PL111475

PATIENT
  Age: 49 Year
  Sex: Male

DRUGS (8)
  1. MYCOPHENOLATE MOFETIL [Concomitant]
     Dosage: 1 G, BID
  2. MYCOPHENOLATE MOFETIL [Concomitant]
     Dosage: 500 MG, QID
  3. OMEPRAZOLE [Concomitant]
     Dosage: 20 MG, UNK
  4. MYCOPHENOLATE SODIUM [Concomitant]
     Dosage: 760 MG, BID
  5. BASILIXIMAB [Suspect]
     Indication: RENAL TRANSPLANT
     Dosage: 20 MG, BID`
  6. PREDNISONE [Concomitant]
     Dosage: 7.5 MG, UNK
  7. GLUCOCORTICOSTEROIDS [Concomitant]
  8. TACROLIMUS [Concomitant]
     Dosage: 6 MG, BID

REACTIONS (5)
  - UROSEPSIS [None]
  - DIARRHOEA [None]
  - URINARY TRACT OBSTRUCTION [None]
  - KIDNEY TRANSPLANT REJECTION [None]
  - URETERIC ANASTOMOSIS COMPLICATION [None]
